FAERS Safety Report 8227139-7 (Version None)
Quarter: 2012Q1

REPORT INFORMATION
  Report Type: 
  Country: None (occurrence: None)
  Receive Date: 20120322
  Receipt Date: 20120319
  Transmission Date: 20120608
  Serious: Yes (Hospitalization)
  Sender: FDA-Public Use
  Company Number: BE-AMGEN-BELSP2011062210

PATIENT
  Age: 76 Year
  Sex: Male
  Weight: 53.7 kg

DRUGS (6)
  1. CYCLOPHOSPHAMIDE [Suspect]
     Indication: B-CELL LYMPHOMA
     Dosage: 1215 MG, QD
     Route: 042
     Dates: start: 20110825
  2. NEUPOGEN [Suspect]
     Indication: B-CELL LYMPHOMA
     Dosage: 6 MG, QD
     Route: 058
     Dates: start: 20110826
  3. RITUXIMAB [Suspect]
     Indication: B-CELL LYMPHOMA
     Dosage: 608 MG, QD
     Route: 042
     Dates: start: 20110825
  4. DOXORUBICIN HCL [Suspect]
     Indication: B-CELL LYMPHOMA
     Dosage: 81 MG, QD
     Route: 042
     Dates: start: 20110825
  5. VINCRISTINE [Suspect]
     Indication: B-CELL LYMPHOMA
     Dosage: 2 MG, QD
     Route: 042
     Dates: start: 20110825
  6. PREDNISONE TAB [Suspect]
     Indication: B-CELL LYMPHOMA
     Dosage: 100 MG, QD
     Route: 048
     Dates: start: 20110825

REACTIONS (2)
  - ABDOMINAL PAIN [None]
  - SMALL INTESTINAL OBSTRUCTION [None]
